FAERS Safety Report 19589127 (Version 2)
Quarter: 2021Q3

REPORT INFORMATION
  Report Type: Spontaneous
  Country: FR (occurrence: FR)
  Receive Date: 20210721
  Receipt Date: 20210902
  Transmission Date: 20211014
  Serious: Yes (Other)
  Sender: FDA-Public Use
  Company Number: FR-PFIZER INC-2021843976

PATIENT
  Age: 33 Year
  Sex: Female

DRUGS (1)
  1. PAMIDRONATE DE SODIUM HOSPIRA [Suspect]
     Active Substance: PAMIDRONATE DISODIUM
     Indication: COMPLEX REGIONAL PAIN SYNDROME
     Dosage: 90 MG, ALTERNATE DAY (FREQ:48 H)
     Route: 041
     Dates: start: 20210607, end: 20210609

REACTIONS (1)
  - Thrombophlebitis superficial [Recovered/Resolved]

NARRATIVE: CASE EVENT DATE: 20210611
